FAERS Safety Report 20628600 (Version 2)
Quarter: 2022Q1

REPORT INFORMATION
  Report Type: Spontaneous
  Country: CN (occurrence: CN)
  Receive Date: 20220323
  Receipt Date: 20220330
  Transmission Date: 20220423
  Serious: Yes (Other)
  Sender: FDA-Public Use
  Company Number: CN-BAYER-2022A042186

PATIENT
  Sex: Male

DRUGS (3)
  1. LORATADINE [Suspect]
     Active Substance: LORATADINE
     Indication: Antiallergic therapy
     Dosage: 2 DF, QD
     Route: 048
     Dates: start: 20220317, end: 20220317
  2. LORATADINE [Suspect]
     Active Substance: LORATADINE
     Indication: Antiallergic therapy
     Dosage: 1 DF, QD
     Route: 048
     Dates: start: 20220318, end: 20220318
  3. LORATADINE [Suspect]
     Active Substance: LORATADINE
     Indication: Antiallergic therapy
     Dosage: 1~1.5 DF, QD
     Route: 048
     Dates: start: 20220319

REACTIONS (6)
  - Hallucination, visual [Recovered/Resolved]
  - Somnolence [Recovering/Resolving]
  - Abnormal dreams [Not Recovered/Not Resolved]
  - Therapeutic product ineffective [None]
  - Intentional product misuse [None]
  - Intentional product misuse [None]

NARRATIVE: CASE EVENT DATE: 20220301
